FAERS Safety Report 6785176-3 (Version None)
Quarter: 2010Q2

REPORT INFORMATION
  Report Type: 
  Country: None (occurrence: None)
  Receive Date: 20100621
  Receipt Date: 20100621
  Transmission Date: 20101027
  Serious: No
  Sender: FDA-Public Use
  Company Number: None

PATIENT
  Age: 43 Year
  Sex: Male
  Weight: 104.3273 kg

DRUGS (2)
  1. CHANTIX [Suspect]
     Indication: SMOKING CESSATION THERAPY
     Dosage: / 0.5MG TWICE DAILY PO
     Route: 048
     Dates: start: 20080110, end: 20080112
  2. CHANTIX [Suspect]
     Dosage: 1.0MG TWICE DAILY PO
     Route: 048
     Dates: start: 20080113, end: 20080120

REACTIONS (5)
  - CONDITION AGGRAVATED [None]
  - NAUSEA [None]
  - SOMNOLENCE [None]
  - TOBACCO USER [None]
  - VOMITING [None]
